FAERS Safety Report 6880146-9 (Version None)
Quarter: 2010Q3

REPORT INFORMATION
  Report Type: 
  Country: None (occurrence: None)
  Receive Date: 20100728
  Receipt Date: 20100125
  Transmission Date: 20110219
  Serious: No
  Sender: FDA-Public Use
  Company Number: US-BRISTOL-MYERS SQUIBB COMPANY-14950513

PATIENT

DRUGS (2)
  1. SPRYCEL [Suspect]
     Dosage: TAKEN APP 1 YEAR
  2. FENTANYL-75 [Interacting]
     Dosage: TAKEN APP 1 YEAR

REACTIONS (1)
  - DRUG INTERACTION [None]
